FAERS Safety Report 9581472 (Version 1)
Quarter: 2013Q4

REPORT INFORMATION
  Report Type: Spontaneous
  Country: DE (occurrence: DE)
  Receive Date: 20131002
  Receipt Date: 20131002
  Transmission Date: 20140711
  Serious: Yes (Other)
  Sender: FDA-Public Use
  Company Number: GXKR2013DE003117

PATIENT
  Sex: Female

DRUGS (1)
  1. ESTRADIOL, NORETHISTERONE [Suspect]
     Indication: MENOPAUSE
     Dosage: 40 UKN, UNK
     Route: 062
     Dates: start: 201308

REACTIONS (1)
  - Postmenopausal haemorrhage [Not Recovered/Not Resolved]
